FAERS Safety Report 23546523 (Version 2)
Quarter: 2024Q1

REPORT INFORMATION
  Report Type: Spontaneous
  Country: US (occurrence: US)
  Receive Date: 20240221
  Receipt Date: 20240321
  Transmission Date: 20240410
  Serious: No
  Sender: FDA-Public Use
  Company Number: US-TOLMAR, INC.-24US046285

PATIENT
  Age: 73 Year
  Sex: Male

DRUGS (4)
  1. ELIGARD [Suspect]
     Active Substance: LEUPROLIDE ACETATE
     Indication: Prostate cancer
     Dosage: 45 MILLIGRAM, Q 6 MONTH
     Route: 058
     Dates: start: 20240118
  2. ELIGARD [Suspect]
     Active Substance: LEUPROLIDE ACETATE
     Dosage: 45 MILLIGRAM, Q 6 MONTH
     Route: 058
     Dates: start: 20240118
  3. ELIGARD [Suspect]
     Active Substance: LEUPROLIDE ACETATE
     Dosage: 45 MILLIGRAM, Q 6 MONTH
     Route: 058
     Dates: start: 202212
  4. DEVICE [Suspect]
     Active Substance: DEVICE
     Indication: Prostate cancer
     Dosage: UNK

REACTIONS (6)
  - Intercepted product preparation error [Unknown]
  - Wrong technique in product usage process [Unknown]
  - Needle issue [Unknown]
  - Device malfunction [Unknown]
  - Syringe issue [Unknown]
  - Device leakage [Unknown]

NARRATIVE: CASE EVENT DATE: 20240118
